FAERS Safety Report 6318163-X (Version None)
Quarter: 2009Q3

REPORT INFORMATION
  Report Type: 
  Country: None (occurrence: None)
  Receive Date: 20090821
  Receipt Date: 20090814
  Transmission Date: 20100115
  Serious: Yes (Other)
  Sender: FDA-Public Use
  Company Number: A0803111A

PATIENT
  Sex: Female
  Weight: 17 kg

DRUGS (3)
  1. SERETIDE [Suspect]
     Indication: ASTHMA
     Dosage: 1PUFF TWICE PER DAY
     Route: 065
     Dates: start: 20070101
  2. PREDSIM [Concomitant]
     Dosage: 6ML AS REQUIRED
     Dates: start: 20070101
  3. TRIFEDRIN [Concomitant]
     Dosage: 2ML PER DAY
     Dates: start: 20090417

REACTIONS (4)
  - ASTHMATIC CRISIS [None]
  - DRUG INEFFECTIVE [None]
  - OVERDOSE [None]
  - PRODUCT QUALITY ISSUE [None]
